FAERS Safety Report 17131035 (Version 5)
Quarter: 2020Q1

REPORT INFORMATION
  Report Type: Spontaneous
  Country: CN (occurrence: CN)
  Receive Date: 20191209
  Receipt Date: 20200130
  Transmission Date: 20200409
  Serious: Yes (Hospitalization, Other)
  Sender: FDA-Public Use
  Company Number: CN-009507513-1912CHN001701

PATIENT
  Age: 74 Year
  Sex: Male
  Weight: 66.5 kg

DRUGS (1)
  1. KEYTRUDA [Suspect]
     Active Substance: PEMBROLIZUMAB
     Indication: SQUAMOUS CELL CARCINOMA OF LUNG
     Dosage: 200 MG, 21 DAYS/CYCLE
     Dates: start: 201908, end: 20191011

REACTIONS (12)
  - Dependence on oxygen therapy [Not Recovered/Not Resolved]
  - Immune-mediated pneumonitis [Unknown]
  - Nasopharyngitis [Unknown]
  - Oxygen saturation decreased [Unknown]
  - Critical illness [Unknown]
  - Heart rate increased [Unknown]
  - Adverse event [Unknown]
  - Respiratory gas exchange disorder [Not Recovered/Not Resolved]
  - Combined pulmonary fibrosis and emphysema [Unknown]
  - Lung disorder [Not Recovered/Not Resolved]
  - Muscle atrophy [Unknown]
  - Dyspnoea [Unknown]

NARRATIVE: CASE EVENT DATE: 201910
